FAERS Safety Report 4382331-7 (Version None)
Quarter: 2004Q2

REPORT INFORMATION
  Report Type: 
  Country: None (occurrence: None)
  Receive Date: 20040622
  Receipt Date: 20040611
  Transmission Date: 20050107
  Serious: Yes (Hospitalization)
  Sender: FDA-Public Use
  Company Number: PHBS2004US07798

PATIENT
  Age: 56 Year
  Sex: Male

DRUGS (3)
  1. CYCLOSPORINE [Suspect]
     Indication: RENAL AND PANCREAS TRANSPLANT
     Route: 065
     Dates: start: 20010601
  2. MYCOPHENOLATE MOFETIL [Suspect]
     Indication: RENAL AND PANCREAS TRANSPLANT
     Route: 065
  3. PREDNISONE [Suspect]
     Indication: RENAL AND PANCREAS TRANSPLANT
     Route: 065

REACTIONS (10)
  - GASTRIC POLYPS [None]
  - GASTRIC ULCER [None]
  - LOBAR PNEUMONIA [None]
  - MALAISE [None]
  - NAUSEA [None]
  - PANCREATIC CARCINOMA [None]
  - PANCREATITIS CHRONIC [None]
  - PYREXIA [None]
  - URINARY TRACT INFECTION [None]
  - VOMITING [None]
